FAERS Safety Report 19865516 (Version 3)
Quarter: 2021Q4

REPORT INFORMATION
  Report Type: Spontaneous
  Country: US (occurrence: US)
  Receive Date: 20210921
  Receipt Date: 20211004
  Transmission Date: 20220303
  Serious: No
  Sender: FDA-Public Use
  Company Number: US-GILEAD-2021-0549004

PATIENT
  Age: 37 Year
  Sex: Male

DRUGS (1)
  1. SOFOSBUVIR\VELPATASVIR [Suspect]
     Active Substance: SOFOSBUVIR\VELPATASVIR
     Indication: Chronic hepatitis C
     Dosage: 1 DOSAGE FORM, QD
     Route: 048

REACTIONS (5)
  - Fatigue [Recovered/Resolved]
  - Product packaging quantity issue [Unknown]
  - Product dose omission issue [Unknown]
  - Laziness [Unknown]
  - Asthenia [Unknown]
